FAERS Safety Report 18962891 (Version 2)
Quarter: 2021Q1

REPORT INFORMATION
  Report Type: Spontaneous
  Country: GB (occurrence: GB)
  Receive Date: 20210303
  Receipt Date: 20210317
  Transmission Date: 20210420
  Serious: Yes (Hospitalization, Other)
  Sender: FDA-Public Use
  Company Number: GB-009507513-2103GBR000131

PATIENT
  Sex: Female

DRUGS (3)
  1. ISENTRESS [Suspect]
     Active Substance: RALTEGRAVIR POTASSIUM
     Dosage: STRENGTH 600 (UNITS UNKNOWN)
     Route: 048
  2. DAPSONE. [Suspect]
     Active Substance: DAPSONE
     Dosage: STRENGTH 100 (UNITS UNKNOWN)
  3. EMTRIVA [Suspect]
     Active Substance: EMTRICITABINE
     Dosage: STRENGTH 200/245 (UNITS UNKNOWN)

REACTIONS (1)
  - Lymphoma [Unknown]
